FAERS Safety Report 21674474 (Version 1)
Quarter: 2022Q4

REPORT INFORMATION
  Report Type: Spontaneous
  Country: JP (occurrence: JP)
  Receive Date: 20221202
  Receipt Date: 20221202
  Transmission Date: 20230113
  Serious: Yes (Other)
  Sender: FDA-Public Use
  Company Number: JP-ELI_LILLY_AND_COMPANY-JP202211013407

PATIENT
  Age: 72 Year
  Sex: Male

DRUGS (4)
  1. PEMETREXED [Suspect]
     Active Substance: PEMETREXED
     Indication: Lung adenocarcinoma recurrent
     Route: 065
  2. CARBOPLATIN [Concomitant]
     Active Substance: CARBOPLATIN
     Indication: Lung adenocarcinoma recurrent
  3. OPDIVO [Concomitant]
     Active Substance: NIVOLUMAB
     Indication: Lung adenocarcinoma recurrent
  4. YERVOY [Concomitant]
     Active Substance: IPILIMUMAB
     Indication: Lung adenocarcinoma recurrent

REACTIONS (2)
  - Cytokine release syndrome [Unknown]
  - Shock [Unknown]
